FAERS Safety Report 6546401-7 (Version None)
Quarter: 2010Q1

REPORT INFORMATION
  Report Type: 
  Country: None (occurrence: None)
  Receive Date: 20100114
  Receipt Date: 20091117
  Transmission Date: 20100710
  Serious: No
  Sender: FDA-Public Use
  Company Number: 2009BM000316

PATIENT
  Age: 27 Year
  Sex: Male

DRUGS (1)
  1. KUVAN [Suspect]
     Indication: PHENYLKETONURIA
     Dates: end: 20090901

REACTIONS (2)
  - MALAISE [None]
  - PHARYNGITIS [None]
